FAERS Safety Report 9083838 (Version 1)
Quarter: 2013Q1

REPORT INFORMATION
  Report Type: Report from Study
  Country: US (occurrence: US)
  Receive Date: 20130131
  Receipt Date: 20130131
  Transmission Date: 20140127
  Serious: No
  Sender: FDA-Public Use
  Company Number: US-ABBOTT-12P-163-0991782-00

PATIENT
  Age: 57 Year
  Sex: Male

DRUGS (4)
  1. HUMIRA PEN [Suspect]
     Indication: RHEUMATOID ARTHRITIS
  2. HUMIRA PEN [Suspect]
  3. PAIN PILL [Concomitant]
     Indication: PAIN
  4. LOSARTAN [Concomitant]
     Indication: BLOOD PRESSURE

REACTIONS (1)
  - Pain [Unknown]
